FAERS Safety Report 9170472 (Version 1)
Quarter: 2013Q1

REPORT INFORMATION
  Report Type: Spontaneous
  Country: GB (occurrence: None)
  Receive Date: 20130311
  Receipt Date: 20130311
  Transmission Date: 20140127
  Serious: Yes (Other)
  Sender: FDA-Public Use
  Company Number: GB-1196864

PATIENT
  Age: 74 Year
  Sex: Male

DRUGS (14)
  1. IOPIDINE [Suspect]
     Indication: GLAUCOMA
     Dosage: (1 GTT TID OPHTHALMIC)
     Dates: start: 20130207
  2. ALLOPURINOL [Concomitant]
  3. ASPIRIN [Concomitant]
  4. BETAMETHASONE VALERATE [Concomitant]
  5. BIMATOPROST [Concomitant]
  6. COSOPT [Concomitant]
  7. FERROUS SULPHATE [Concomitant]
  8. HYPROMELLOSE [Concomitant]
  9. LERCANIDIPINE [Concomitant]
  10. LOSARTAN [Concomitant]
  11. MAXIDEX OPHTHALMIC [Concomitant]
  12. METFORMIN [Concomitant]
  13. SIMPLE LINCTUS [Concomitant]
  14. SIMVASTATIN [Concomitant]

REACTIONS (4)
  - Eyelid oedema [None]
  - Eye pruritus [None]
  - Lacrimation increased [None]
  - Ocular hyperaemia [None]
